FAERS Safety Report 7426726-3 (Version None)
Quarter: 2011Q2

REPORT INFORMATION
  Report Type: 
  Country: None (occurrence: None)
  Receive Date: 20110420
  Receipt Date: 20110412
  Transmission Date: 20111010
  Serious: No
  Sender: FDA-Public Use
  Company Number: CY-ELI_LILLY_AND_COMPANY-CY201102002454

PATIENT
  Age: 32 Year
  Sex: Male

DRUGS (2)
  1. CIALIS [Suspect]
     Indication: ERECTILE DYSFUNCTION
     Dosage: 20 MG, PRN
     Dates: start: 20080101
  2. CIALIS [Suspect]
     Dosage: 1 D/F, UNK

REACTIONS (3)
  - VISION BLURRED [None]
  - OFF LABEL USE [None]
  - EYELID OEDEMA [None]
